FAERS Safety Report 5025911-8 (Version None)
Quarter: 2006Q2

REPORT INFORMATION
  Report Type: 
  Country: None (occurrence: None)
  Receive Date: 20060614
  Receipt Date: 20060530
  Transmission Date: 20061013
  Serious: Yes (Hospitalization, Other)
  Sender: FDA-Public Use
  Company Number: CA-GLAXOSMITHKLINE-A0607687A

PATIENT
  Age: 87 Year
  Sex: Male

DRUGS (5)
  1. VALTREX [Suspect]
     Indication: HERPES ZOSTER
     Dosage: 1G THREE TIMES PER DAY
     Dates: start: 20060426, end: 20060429
  2. IMDUR [Concomitant]
     Indication: CORONARY ARTERY DISEASE
     Dosage: 30MG PER DAY
  3. ALTACE [Concomitant]
     Indication: CORONARY ARTERY DISEASE
     Dosage: 25MG PER DAY
  4. ASPIRIN [Concomitant]
     Indication: CORONARY ARTERY DISEASE
     Dosage: 325MG PER DAY
  5. ELAVIL [Concomitant]

REACTIONS (5)
  - COLITIS [None]
  - DEHYDRATION [None]
  - DIARRHOEA [None]
  - GASTROINTESTINAL HYPOMOTILITY [None]
  - HYPOKALAEMIA [None]
